FAERS Safety Report 8529313-9 (Version None)
Quarter: 2012Q3

REPORT INFORMATION
  Report Type: 
  Country: None (occurrence: None)
  Receive Date: 20120723
  Receipt Date: 20120719
  Transmission Date: 20120928
  Serious: Yes (Other)
  Sender: FDA-Public Use
  Company Number: US-TEVA-349258USA

PATIENT
  Sex: Female
  Weight: 97.156 kg

DRUGS (9)
  1. CITALOPRAM HYDROBROMIDE [Concomitant]
  2. NUVIGIL [Suspect]
     Indication: SLEEP APNOEA SYNDROME
     Dosage: 250 MILLIGRAM; Q AM
     Route: 048
     Dates: start: 20111024
  3. CRESTOR [Concomitant]
  4. BUPROPION HCL [Concomitant]
  5. ATENOLOL [Concomitant]
  6. CIPROFLOXACIN [Concomitant]
     Route: 031
  7. ASPIRIN [Concomitant]
     Dosage: 81 MILLIGRAM;
     Route: 048
  8. CIPROFLOXACIN HCL [Suspect]
  9. PRAMIPEXOLE DIHYCHLORIDE [Concomitant]
     Indication: SLEEP DISORDER
     Dosage: 1 MILLIGRAM; Q HS
     Route: 048

REACTIONS (3)
  - STEVENS-JOHNSON SYNDROME [None]
  - HYPOPNOEA [None]
  - WEIGHT INCREASED [None]
